FAERS Safety Report 8908588 (Version 1)
Quarter: 2012Q4

REPORT INFORMATION
  Report Type: 
  Country: DE (occurrence: DE)
  Receive Date: 20121114
  Receipt Date: 20121114
  Transmission Date: 20130627
  Serious: Yes (Other)
  Sender: FDA-Public Use
  Company Number: DE-B.I. PHARMACEUTICALS,INC./RIDGEFIELD-2012-DE-02655DE

PATIENT
  Age: 74 Year
  Sex: Female

DRUGS (4)
  1. PRADAXA [Suspect]
     Indication: ATRIAL FIBRILLATION
     Dosage: 220 mg
     Dates: start: 201209
  2. SIMVASTATIN [Concomitant]
     Dates: start: 2009
  3. PANTOPRAZOL [Concomitant]
  4. IRON PREPARATION [Concomitant]

REACTIONS (2)
  - Hepatic enzyme increased [Not Recovered/Not Resolved]
  - Haemoglobin increased [Not Recovered/Not Resolved]
